FAERS Safety Report 12560818 (Version 1)
Quarter: 2016Q3

REPORT INFORMATION
  Report Type: Report from Study
  Country: US (occurrence: US)
  Receive Date: 20160715
  Receipt Date: 20160715
  Transmission Date: 20161109
  Serious: Yes (Hospitalization, Other)
  Sender: FDA-Public Use
  Company Number: US-AMGEN-USASL2016090432

PATIENT
  Age: 78 Year
  Sex: Male

DRUGS (1)
  1. PROCRIT [Suspect]
     Active Substance: ERYTHROPOIETIN
     Indication: RENAL DISORDER
     Dosage: 4000 UNIT, UNK
     Route: 042

REACTIONS (2)
  - Abasia [Unknown]
  - Confusional state [Unknown]

NARRATIVE: CASE EVENT DATE: 20160706
